FAERS Safety Report 7404288-4 (Version None)
Quarter: 2011Q2

REPORT INFORMATION
  Report Type: 
  Country: None (occurrence: None)
  Receive Date: 20110408
  Receipt Date: 20110401
  Transmission Date: 20111010
  Serious: Yes (Hospitalization)
  Sender: FDA-Public Use
  Company Number: GB-B.I. PHARMACEUTICALS,INC./RIDGEFIELD-2010-UK-00970UK

PATIENT
  Sex: Male

DRUGS (4)
  1. DIXARIT [Suspect]
     Indication: TOURETTE'S DISORDER
     Dosage: CATAPRES 100MCG BD AND DIXARIT MCG ONCE A DAY(MIDDAY)
     Route: 048
     Dates: end: 20100904
  2. DIXARIT [Suspect]
  3. CATAPRES [Suspect]
     Indication: TOURETTE'S DISORDER
     Dosage: CATAPRES 100MCG BD AND DIXARIT MCG ONCE A DAY(MIDDAY)
     Route: 048
  4. CATAPRES [Suspect]

REACTIONS (7)
  - COORDINATION ABNORMAL [None]
  - BRADYCARDIA [None]
  - ASTHENIA [None]
  - DIZZINESS [None]
  - ORTHOSTATIC HYPOTENSION [None]
  - DYSARTHRIA [None]
  - FALL [None]
